FAERS Safety Report 14987098 (Version 2)
Quarter: 2018Q2

REPORT INFORMATION
  Report Type: Report from Study
  Country: US (occurrence: US)
  Receive Date: 20180608
  Receipt Date: 20180614
  Transmission Date: 20180711
  Serious: No
  Sender: FDA-Public Use
  Company Number: US-AMGEN-USASL2018075191

PATIENT
  Age: 47 Year
  Sex: Female

DRUGS (1)
  1. ENBREL [Suspect]
     Active Substance: ETANERCEPT
     Indication: PSORIATIC ARTHROPATHY
     Dosage: 50 MG, QWK
     Route: 065
     Dates: start: 20180523

REACTIONS (9)
  - Nausea [Unknown]
  - Palpitations [Recovered/Resolved]
  - Feeling abnormal [Unknown]
  - Headache [Not Recovered/Not Resolved]
  - Injection site warmth [Unknown]
  - Anxiety [Not Recovered/Not Resolved]
  - Injection site erythema [Not Recovered/Not Resolved]
  - Diarrhoea [Unknown]
  - Injection site swelling [Unknown]

NARRATIVE: CASE EVENT DATE: 201805
